FAERS Safety Report 8680270 (Version 5)
Quarter: 2013Q3

REPORT INFORMATION
  Report Type: Spontaneous
  Country: US (occurrence: US)
  Receive Date: 20120724
  Receipt Date: 20130924
  Transmission Date: 20140515
  Serious: Yes (Hospitalization, Disabling, Other)
  Sender: FDA-Public Use
  Company Number: US-009507513-1207USA004858

PATIENT
  Sex: Female
  Weight: 54.42 kg

DRUGS (8)
  1. FOSAMAX [Suspect]
     Dosage: 5 MG, UNK
     Route: 048
     Dates: start: 20020322, end: 20040517
  2. FOSAMAX [Suspect]
     Dosage: 35 MG, UNK
     Route: 048
     Dates: start: 20040517, end: 20080210
  3. FOSAMAX [Suspect]
     Dosage: 35 MG, UNK
     Route: 048
     Dates: start: 20080210, end: 20090709
  4. CALTRATE (CALCIUM CARBONATE (+) CHOLECALCIFEROL) [Concomitant]
     Dosage: UNK
     Route: 048
     Dates: start: 2005, end: 2011
  5. CENTRUM (MINERALS (UNSPECIFIED) (+) VITAMINS (UNSPECIFIED)) [Concomitant]
     Dosage: UNK
     Route: 048
     Dates: start: 2008
  6. PRILOSEC [Concomitant]
     Dosage: UNK
     Route: 048
     Dates: start: 1997
  7. GLUCOSAMINE [Concomitant]
     Dosage: UNK, BID
     Route: 048
     Dates: start: 1997
  8. CORTICOSTEROIDS (UNSPECIFIED) [Concomitant]
     Dosage: UNK
     Dates: start: 1995, end: 2003

REACTIONS (35)
  - Femur fracture [Not Recovered/Not Resolved]
  - Intramedullary rod insertion [Unknown]
  - Haemorrhagic anaemia [Unknown]
  - Fracture delayed union [Unknown]
  - Convulsion [Unknown]
  - Intramedullary rod insertion [Unknown]
  - Anaemia postoperative [Recovered/Resolved]
  - Femur fracture [Unknown]
  - Tooth extraction [Unknown]
  - Tooth extraction [Unknown]
  - Tooth extraction [Unknown]
  - Low turnover osteopathy [Unknown]
  - Osteoporosis [Unknown]
  - Dental prosthesis user [Unknown]
  - Endodontic procedure [Unknown]
  - Dental caries [Unknown]
  - Depression [Unknown]
  - Hypertension [Unknown]
  - Hypertonic bladder [Unknown]
  - Breast cyst [Unknown]
  - Herpes virus infection [Unknown]
  - Nephrolithiasis [Unknown]
  - Migraine [Unknown]
  - Glaucoma [Unknown]
  - Road traffic accident [Recovering/Resolving]
  - Medical device implantation [Unknown]
  - Fall [Recovering/Resolving]
  - Fall [Unknown]
  - Bursitis [Unknown]
  - Pain [Unknown]
  - Gastrooesophageal reflux disease [Unknown]
  - Nausea [Unknown]
  - Oedema peripheral [Unknown]
  - Constipation [Unknown]
  - Arthralgia [Unknown]
